FAERS Safety Report 6348596-7 (Version None)
Quarter: 2009Q3

REPORT INFORMATION
  Report Type: 
  Country: None (occurrence: None)
  Receive Date: 20090911
  Receipt Date: 20090902
  Transmission Date: 20100115
  Serious: Yes (Hospitalization)
  Sender: FDA-Public Use
  Company Number: FR-ROCHE-654008

PATIENT
  Sex: Male

DRUGS (3)
  1. VALIUM [Suspect]
     Indication: ANXIETY
     Route: 065
     Dates: start: 20090713, end: 20090715
  2. STABLON [Concomitant]
  3. IMOVANE [Concomitant]
     Indication: INSOMNIA

REACTIONS (1)
  - RASH MACULO-PAPULAR [None]
